FAERS Safety Report 16774546 (Version 1)
Quarter: 2019Q3

REPORT INFORMATION
  Report Type: Spontaneous
  Country: US (occurrence: US)
  Receive Date: 20190715
  Receipt Date: 20190715
  Transmission Date: 20191005
  Serious: No
  Sender: FDA-Public Use
  Company Number: None

PATIENT
  Age: 74 Year
  Sex: Female
  Weight: 68.04 kg

DRUGS (4)
  1. FORTEO [Suspect]
     Active Substance: TERIPARATIDE
     Indication: GASTROOESOPHAGEAL REFLUX DISEASE
     Dosage: AS DIRECTED
     Route: 058
     Dates: start: 201904
  2. FORTEO [Suspect]
     Active Substance: TERIPARATIDE
     Indication: OSTEOPOROSIS
     Dosage: AS DIRECTED
     Route: 058
     Dates: start: 201904
  3. FORTEO [Suspect]
     Active Substance: TERIPARATIDE
     Indication: VITAMIN K DEFICIENCY
     Dosage: AS DIRECTED
     Route: 058
     Dates: start: 201904
  4. FORTEO [Suspect]
     Active Substance: TERIPARATIDE
     Indication: OSTEOPOROTIC FRACTURE
     Dosage: AS DIRECTED
     Route: 058
     Dates: start: 201904

REACTIONS (1)
  - Peripheral swelling [None]
